FAERS Safety Report 24608048 (Version 1)
Quarter: 2024Q4

REPORT INFORMATION
  Report Type: Report from Study
  Country: AT (occurrence: AT)
  Receive Date: 20241112
  Receipt Date: 20241112
  Transmission Date: 20250115
  Serious: Yes (Other)
  Sender: MYLAN
  Company Number: AT-MYLANLABS-2024M1100650

PATIENT
  Sex: Female

DRUGS (2)
  1. DOXORUBICIN [Suspect]
     Active Substance: DOXORUBICIN
     Indication: Sarcoma uterus
     Dosage: 30 MILLIGRAM/SQ. METER,AS A 60MIN INFUSION. EVERY 3?WEEKS.
     Route: 065
  2. TRABECTEDIN [Suspect]
     Active Substance: TRABECTEDIN
     Indication: Sarcoma uterus
     Dosage: 1.5 MILLIGRAM/SQ. METER,AS A 24 HOUR INFUSION. EVERY 3?WEEKS.
     Route: 065

REACTIONS (2)
  - Cardiotoxicity [Unknown]
  - Ejection fraction decreased [Unknown]
